FAERS Safety Report 12077714 (Version 1)
Quarter: 2016Q1

REPORT INFORMATION
  Report Type: Spontaneous
  Country: JP (occurrence: JP)
  Receive Date: 20160215
  Receipt Date: 20160215
  Transmission Date: 20160526
  Serious: Yes (Hospitalization)
  Sender: FDA-Public Use
  Company Number: JP-IPCA LABORATORIES LIMITED-IPC201602-000111

PATIENT
  Age: 50 Year
  Sex: Female

DRUGS (5)
  1. WARFARIN [Suspect]
     Active Substance: WARFARIN
     Indication: ANTIPHOSPHOLIPID SYNDROME
  2. BERAPROST SODIUM [Concomitant]
     Active Substance: BERAPROST SODIUM
     Indication: ANTIPHOSPHOLIPID SYNDROME
  3. BERAPROST SODIUM [Concomitant]
     Active Substance: BERAPROST SODIUM
     Indication: PERIPHERAL ARTERIAL OCCLUSIVE DISEASE
  4. WARFARIN [Suspect]
     Active Substance: WARFARIN
     Indication: PERIPHERAL ARTERIAL OCCLUSIVE DISEASE
  5. INSULIN [Concomitant]
     Active Substance: INSULIN NOS
     Indication: DIABETES MELLITUS

REACTIONS (2)
  - Gangrene [Not Recovered/Not Resolved]
  - Calciphylaxis [Not Recovered/Not Resolved]
